FAERS Safety Report 21176754 (Version 1)
Quarter: 2022Q3

REPORT INFORMATION
  Report Type: Spontaneous
  Country: IT (occurrence: IT)
  Receive Date: 20220805
  Receipt Date: 20220805
  Transmission Date: 20221027
  Serious: Yes (Death, Other)
  Sender: FDA-Public Use
  Company Number: IT-MYLANLABS-2022M1083882

PATIENT
  Age: 36 Year
  Sex: Male

DRUGS (10)
  1. CISPLATIN [Suspect]
     Active Substance: CISPLATIN
     Indication: Cholangiocarcinoma
     Dosage: UNK, CYCLE (RECEIVED 7 CYCLES IN 6 MONTHS)
     Route: 065
     Dates: start: 2016, end: 2017
  2. CISPLATIN [Suspect]
     Active Substance: CISPLATIN
     Dosage: UNK, CYCLE (RECEIVED 4 CYCLES)
     Route: 065
     Dates: start: 2019, end: 2019
  3. GEMCITABINE [Suspect]
     Active Substance: GEMCITABINE
     Indication: Cholangiocarcinoma
     Dosage: UNK, CYCLE (RECEIVED 7 CYCLES IN 6 MONTHS)
     Route: 065
     Dates: start: 2016, end: 2017
  4. GEMCITABINE [Suspect]
     Active Substance: GEMCITABINE
     Dosage: UNK, CYCLE (RECEIVED 4 CYCLES)
     Route: 065
     Dates: start: 2019, end: 2019
  5. CAPECITABINE [Suspect]
     Active Substance: CAPECITABINE
     Indication: Cholangiocarcinoma
     Dosage: UNK, CYCLE
     Route: 065
     Dates: start: 2017, end: 2017
  6. OXALIPLATIN [Suspect]
     Active Substance: OXALIPLATIN
     Indication: Cholangiocarcinoma
     Dosage: UNK, CYCLE (RECEIVED 8 CYCLE OF FOLFOX REGIMEN)
     Route: 065
     Dates: start: 2018, end: 2018
  7. FLUOROURACIL [Suspect]
     Active Substance: FLUOROURACIL
     Indication: Cholangiocarcinoma
     Dosage: UNK, CYCLE(RECEIVED 8 CYCLE OF FOLFOX REGIMEN)
     Route: 065
     Dates: start: 2018, end: 2018
  8. LEUCOVORIN [Suspect]
     Active Substance: LEUCOVORIN
     Indication: Cholangiocarcinoma
     Dosage: UNK, CYCLE(RECEIVED 8 CYCLE OF FOLFOX REGIMEN)
     Route: 065
     Dates: start: 2018, end: 2018
  9. ATEZOLIZUMAB [Concomitant]
     Active Substance: ATEZOLIZUMAB
     Indication: Cholangiocarcinoma
     Dosage: 1200 MILLIGRAM, Q3W (1200 MILLIGRAM, CYCLE (RECEIVED 14 CYCLES)
     Route: 065
     Dates: start: 201709, end: 2018
  10. OLAPARIB [Concomitant]
     Active Substance: OLAPARIB
     Indication: Cholangiocarcinoma
     Dosage: UNK
     Route: 065

REACTIONS (2)
  - Drug ineffective [Fatal]
  - Disease progression [Fatal]
